APPROVED DRUG PRODUCT: RIVASTIGMINE TARTRATE
Active Ingredient: RIVASTIGMINE TARTRATE
Strength: EQ 1.5MG BASE
Dosage Form/Route: CAPSULE;ORAL
Application: A091072 | Product #001
Applicant: APOTEX INC
Approved: May 16, 2013 | RLD: No | RS: No | Type: DISCN